FAERS Safety Report 19929189 (Version 1)
Quarter: 2021Q4

REPORT INFORMATION
  Report Type: Spontaneous
  Country: FR (occurrence: FR)
  Receive Date: 20211007
  Receipt Date: 20211007
  Transmission Date: 20220303
  Serious: Yes (Other)
  Sender: FDA-Public Use
  Company Number: None

PATIENT
  Age: 41 Year
  Sex: Female

DRUGS (6)
  1. RISPERIDONE [Suspect]
     Active Substance: RISPERIDONE
     Indication: Mental disorder
     Dosage: UNK
     Route: 048
     Dates: start: 20190701, end: 20210423
  2. SERTRALINE [Suspect]
     Active Substance: SERTRALINE HYDROCHLORIDE
     Indication: Mental disorder
     Dosage: 100 MILLIGRAM, QD
     Route: 048
     Dates: start: 20191108
  3. VALPROIC ACID [Suspect]
     Active Substance: VALPROIC ACID
     Indication: Mental disorder
     Dosage: 1000 MILLIGRAM, QD
     Route: 048
     Dates: end: 20210413
  4. QUETIAPINE [Suspect]
     Active Substance: QUETIAPINE
     Indication: Mental disorder
     Dosage: 200 MILLIGRAM, QD
     Route: 048
     Dates: start: 20201204, end: 20210308
  5. ALPRAZOLAM [Concomitant]
     Active Substance: ALPRAZOLAM
     Indication: Mental disorder
     Dosage: 1 MILLIGRAM, QD
     Route: 048
     Dates: start: 20200310
  6. LORMETAZEPAM [Concomitant]
     Active Substance: LORMETAZEPAM
     Indication: Mental disorder
     Dosage: 2 MILLIGRAM, QD
     Route: 048
     Dates: start: 20191112

REACTIONS (4)
  - Tardive dyskinesia [Recovering/Resolving]
  - Tremor [Recovered/Resolved]
  - Akathisia [Not Recovered/Not Resolved]
  - Dystonia [Recovered/Resolved]

NARRATIVE: CASE EVENT DATE: 20201216
